FAERS Safety Report 14529720 (Version 2)
Quarter: 2018Q1

REPORT INFORMATION
  Report Type: Spontaneous
  Country: JP (occurrence: JP)
  Receive Date: 20180214
  Receipt Date: 20180316
  Transmission Date: 20180509
  Serious: Yes (Hospitalization)
  Sender: FDA-Public Use
  Company Number: PHJP2018JP003203

PATIENT
  Age: 77 Year
  Sex: Male

DRUGS (1)
  1. EXELON PATCH [Suspect]
     Active Substance: RIVASTIGMINE
     Indication: PRODUCT USED FOR UNKNOWN INDICATION
     Dosage: 0.95 MG, QD (DIVIDE PATCH 2.5 IN HALF AND USE IT)
     Route: 062

REACTIONS (2)
  - Jaundice cholestatic [Unknown]
  - Wrong technique in product usage process [Unknown]
